FAERS Safety Report 12773423 (Version 2)
Quarter: 2016Q4

REPORT INFORMATION
  Report Type: Spontaneous
  Country: US (occurrence: US)
  Receive Date: 20160922
  Receipt Date: 20161024
  Transmission Date: 20170207
  Serious: No
  Sender: FDA-Public Use
  Company Number: US-TAKEDA-2016TUS016666

PATIENT
  Sex: Female
  Weight: 58.96 kg

DRUGS (2)
  1. ENTYVIO [Suspect]
     Active Substance: VEDOLIZUMAB
     Indication: CROHN^S DISEASE
     Dosage: 300 MG, UNK
     Route: 042
     Dates: start: 20150311
  2. PREZO [Concomitant]
     Dosage: UNK

REACTIONS (2)
  - Pregnancy [Unknown]
  - No adverse event [Unknown]
